FAERS Safety Report 6583600-2 (Version None)
Quarter: 2010Q1

REPORT INFORMATION
  Report Type: 
  Country: None (occurrence: None)
  Receive Date: 20100216
  Receipt Date: 20100203
  Transmission Date: 20100710
  Serious: Yes (Other)
  Sender: FDA-Public Use
  Company Number: BE-GENENTECH-290795

PATIENT
  Sex: Female

DRUGS (5)
  1. XOLAIR [Suspect]
     Indication: ASTHMA
     Dosage: 300 MG, 1/MONTH
     Route: 058
     Dates: start: 20070122
  2. SERETIDE [Concomitant]
     Indication: DRUG USE FOR UNKNOWN INDICATION
  3. VENTOLIN [Concomitant]
     Indication: DRUG USE FOR UNKNOWN INDICATION
  4. ACCOLATE [Concomitant]
     Indication: DRUG USE FOR UNKNOWN INDICATION
  5. XANTHIUM [Concomitant]
     Indication: DRUG USE FOR UNKNOWN INDICATION

REACTIONS (8)
  - ASTHMA [None]
  - DANDRUFF [None]
  - PIGMENTATION DISORDER [None]
  - PRURITUS [None]
  - PSORIASIS [None]
  - SEBORRHOEIC KERATOSIS [None]
  - SKIN LESION [None]
  - SKIN PLAQUE [None]
